FAERS Safety Report 6997175-7 (Version None)
Quarter: 2010Q3

REPORT INFORMATION
  Report Type: 
  Country: None (occurrence: None)
  Receive Date: 20100918
  Receipt Date: 20090916
  Transmission Date: 20110219
  Serious: Yes (Other)
  Sender: FDA-Public Use
  Company Number: US-WYE-H11012209

PATIENT

DRUGS (1)
  1. EFFEXOR [Suspect]
     Dosage: DOSE AND FREQUENCY UNSPECIFIED

REACTIONS (1)
  - CONVULSION [None]
